FAERS Safety Report 4507704-0 (Version None)
Quarter: 2004Q4

REPORT INFORMATION
  Report Type: 
  Country: None (occurrence: None)
  Receive Date: 20040928
  Receipt Date: 20040622
  Transmission Date: 20050328
  Serious: No
  Sender: FDA-Public Use
  Company Number: 04P-163-0264487-00

PATIENT
  Age: 53 Year
  Sex: Female
  Weight: 104.3273 kg

DRUGS (3)
  1. HUMIRA [Suspect]
     Indication: RHEUMATOID ARTHRITIS
     Dosage: 40 MG, 1 IN 2 WK, SUBCUTANEOUS
     Route: 058
     Dates: start: 20031101, end: 20040606
  2. CELECOXIB [Concomitant]
  3. METHOTREXATE [Concomitant]

REACTIONS (7)
  - DEHYDRATION [None]
  - DIABETES MELLITUS [None]
  - DIARRHOEA [None]
  - FEELING ABNORMAL [None]
  - HEADACHE [None]
  - INFLUENZA LIKE ILLNESS [None]
  - URINARY TRACT INFECTION [None]
